FAERS Safety Report 5162929-9 (Version None)
Quarter: 2006Q4

REPORT INFORMATION
  Report Type: 
  Country: None (occurrence: None)
  Receive Date: 20061201
  Receipt Date: 20061121
  Transmission Date: 20070319
  Serious: Yes (Other)
  Sender: FDA-Public Use
  Company Number: AU-SANOFI-SYNTHELABO-A01200610145

PATIENT
  Sex: Male

DRUGS (2)
  1. CYPROTERONE ACETATE [Concomitant]
  2. ELIGARD [Suspect]
     Route: 058

REACTIONS (1)
  - MYALGIA [None]
